FAERS Safety Report 12180793 (Version 1)
Quarter: 2016Q1

REPORT INFORMATION
  Report Type: Spontaneous
  Country: US (occurrence: US)
  Receive Date: 20160315
  Receipt Date: 20160315
  Transmission Date: 20160526
  Serious: No
  Sender: FDA-Public Use
  Company Number: US-PFIZER INC-2016114156

PATIENT
  Age: 61 Year
  Sex: Female
  Weight: 84 kg

DRUGS (2)
  1. LYRICA [Suspect]
     Active Substance: PREGABALIN
     Indication: JAW DISORDER
  2. LYRICA [Suspect]
     Active Substance: PREGABALIN
     Indication: NERVE INJURY
     Dosage: UNK
     Dates: end: 201602

REACTIONS (4)
  - Eating disorder [Unknown]
  - Insomnia [Unknown]
  - Pain [Unknown]
  - Abdominal pain upper [Unknown]
